FAERS Safety Report 7600065-X (Version None)
Quarter: 2011Q2

REPORT INFORMATION
  Report Type: 
  Country: None (occurrence: None)
  Receive Date: 20110629
  Receipt Date: 20110616
  Transmission Date: 20111010
  Serious: Yes (Hospitalization, Other)
  Sender: FDA-Public Use
  Company Number: 2011MA007670

PATIENT
  Age: 15 Year
  Sex: Female

DRUGS (1)
  1. TRAMADOL HYDROCHLORIDE [Suspect]
     Indication: HEADACHE
     Dosage: 500 MG;X1; UNK

REACTIONS (6)
  - HEADACHE [None]
  - HALLUCINATION, VISUAL [None]
  - DIZZINESS [None]
  - SOMNOLENCE [None]
  - VOMITING [None]
  - NAUSEA [None]
